FAERS Safety Report 20947129 (Version 2)
Quarter: 2022Q4

REPORT INFORMATION
  Report Type: Spontaneous
  Country: DK (occurrence: DK)
  Receive Date: 20220610
  Receipt Date: 20221212
  Transmission Date: 20230113
  Serious: Yes (Other)
  Sender: FDA-Public Use
  Company Number: DK-GLAXOSMITHKLINE-DK2021GSK234698

PATIENT
  Age: 57 Year
  Sex: Male

DRUGS (13)
  1. ENTECAVIR [Suspect]
     Active Substance: ENTECAVIR
     Indication: Chronic hepatitis B
     Dosage: 0.5 MG EVERY SECOND DAY
     Route: 065
     Dates: start: 201810, end: 2019
  2. ENTECAVIR [Suspect]
     Active Substance: ENTECAVIR
     Indication: HIV associated nephropathy
     Dosage: 0.5 MILLIGRAM, QD (0.5 MG, QD )
     Route: 065
     Dates: start: 2014, end: 201810
  3. ENTECAVIR [Suspect]
     Active Substance: ENTECAVIR
     Dosage: 5 MILLIGRAM, QD
     Route: 065
  4. ENTECAVIR [Suspect]
     Active Substance: ENTECAVIR
     Dosage: 5 MILLIGRAM, QOD
     Route: 065
     Dates: start: 201810
  5. TENOFOVIR DISOPROXIL [Suspect]
     Active Substance: TENOFOVIR DISOPROXIL
     Indication: HIV infection
     Dosage: 25 MILLIGRAM, QD
     Route: 065
     Dates: start: 201909
  6. TENOFOVIR DISOPROXIL [Suspect]
     Active Substance: TENOFOVIR DISOPROXIL
     Dosage: 245 MILLIGRAM, QD
     Route: 065
     Dates: start: 2004
  7. LAMIVUDINE [Suspect]
     Active Substance: LAMIVUDINE
     Indication: Hepatitis B
     Dosage: 300 MILLIGRAM, QD (150 MG, BID)
     Route: 065
     Dates: start: 1996, end: 2004
  8. LAMIVUDINE [Suspect]
     Active Substance: LAMIVUDINE
     Indication: HIV infection
     Dosage: UNK
     Route: 065
     Dates: start: 201904
  9. TENOFOVIR ALAFENAMIDE [Suspect]
     Active Substance: TENOFOVIR ALAFENAMIDE
     Indication: Chronic hepatitis B
     Dosage: UNK
     Route: 065
     Dates: start: 2019
  10. TENOFOVIR ALAFENAMIDE FUMARATE [Suspect]
     Active Substance: TENOFOVIR ALAFENAMIDE FUMARATE
     Indication: Chronic hepatitis B
     Dosage: 25 MILLIGRAM, QD
     Route: 065
     Dates: start: 201909
  11. TENOFOVIR ALAFENAMIDE FUMARATE [Suspect]
     Active Substance: TENOFOVIR ALAFENAMIDE FUMARATE
     Dosage: 25 MILLIGRAM, Q3D
     Route: 065
  12. TELBIVUDINE [Suspect]
     Active Substance: TELBIVUDINE
     Indication: HIV infection
     Dosage: UNK
     Route: 065
  13. WARFARIN [Concomitant]
     Active Substance: WARFARIN
     Indication: Atrial fibrillation
     Dosage: UNK
     Route: 065
     Dates: start: 2018

REACTIONS (7)
  - HIV associated nephropathy [Unknown]
  - Pathogen resistance [Unknown]
  - Viral load increased [Not Recovered/Not Resolved]
  - Drug resistance [Unknown]
  - Drug ineffective [Unknown]
  - Viral mutation identified [Not Recovered/Not Resolved]
  - Off label use [Unknown]

NARRATIVE: CASE EVENT DATE: 20190401
